FAERS Safety Report 7334987-4 (Version None)
Quarter: 2011Q1

REPORT INFORMATION
  Report Type: 
  Country: None (occurrence: None)
  Receive Date: 20110302
  Receipt Date: 20110302
  Transmission Date: 20110831
  Serious: No
  Sender: FDA-Public Use
  Company Number: None

PATIENT
  Age: 67 Year
  Sex: Female
  Weight: 81.1939 kg

DRUGS (1)
  1. EVISTA [Suspect]
     Indication: BREAST OPERATION
     Dosage: 60 MG 1 DAILY
     Dates: start: 20100912, end: 20101101

REACTIONS (2)
  - PAIN IN EXTREMITY [None]
  - MUSCLE SPASMS [None]
